FAERS Safety Report 5673277-2 (Version None)
Quarter: 2008Q1

REPORT INFORMATION
  Report Type: 
  Country: None (occurrence: None)
  Receive Date: 20080319
  Receipt Date: 20080317
  Transmission Date: 20080703
  Serious: Yes (Death)
  Sender: FDA-Public Use
  Company Number: DE-ASTRAZENECA-2008PK00564

PATIENT
  Age: 86 Year
  Sex: Female

DRUGS (3)
  1. SEROQUEL [Suspect]
     Indication: RESTLESSNESS
     Route: 048
  2. SEROQUEL [Suspect]
     Route: 048
  3. RISPERDAL [Suspect]

REACTIONS (1)
  - DEATH [None]
